FAERS Safety Report 5955071-8 (Version None)
Quarter: 2008Q4

REPORT INFORMATION
  Report Type: 
  Country: None (occurrence: None)
  Receive Date: 20081117
  Receipt Date: 20081031
  Transmission Date: 20090506
  Serious: Yes (Other)
  Sender: FDA-Public Use
  Company Number: B0545554A

PATIENT
  Age: 55 Year
  Sex: Male

DRUGS (9)
  1. KIVEXA [Suspect]
     Indication: HIV INFECTION
     Route: 048
     Dates: start: 20060127, end: 20060206
  2. EPIVIR [Suspect]
     Indication: HIV INFECTION
     Route: 048
     Dates: start: 20060206
  3. SUSTIVA [Suspect]
     Indication: HIV INFECTION
     Route: 048
     Dates: start: 20060127
  4. VIDEX [Suspect]
     Indication: HIV INFECTION
     Route: 048
     Dates: start: 20060206
  5. KALETRA [Suspect]
     Indication: HIV INFECTION
     Route: 048
     Dates: start: 20060414
  6. ZERIT [Suspect]
     Indication: HIV INFECTION
     Route: 048
     Dates: start: 20060414
  7. COMBIVIR [Concomitant]
     Indication: HIV INFECTION
     Route: 048
  8. WELLVONE [Concomitant]
     Route: 048
  9. VALGANCICLOVIR HCL [Concomitant]
     Route: 065

REACTIONS (4)
  - DRUG RASH WITH EOSINOPHILIA AND SYSTEMIC SYMPTOMS [None]
  - DRUG RESISTANCE [None]
  - IMMUNE SYSTEM DISORDER [None]
  - LIPODYSTROPHY ACQUIRED [None]
